FAERS Safety Report 5768885-4 (Version None)
Quarter: 2008Q2

REPORT INFORMATION
  Report Type: 
  Country: None (occurrence: None)
  Receive Date: 20080610
  Receipt Date: 20080529
  Transmission Date: 20081010
  Serious: Yes (Death)
  Sender: FDA-Public Use
  Company Number: GXKR2008AT04885

PATIENT
  Age: 25 Year
  Sex: Female

DRUGS (6)
  1. AZATHIOPRINE [Suspect]
     Indication: CANDIDIASIS
  2. AZATHIOPRINE [Suspect]
     Indication: IMMUNOSUPPRESSION
  3. PREDNISOLONE [Suspect]
     Indication: IMMUNOSUPPRESSION
  4. TACROLIMUS [Suspect]
     Indication: IMMUNOSUPPRESSION
  5. ANTITHYMOCYTE IMMUNOGLOBULIN (ANTITHYMOCYTE IMMUNOGLOBULIN) [Suspect]
     Indication: IMMUNOSUPPRESSION
  6. CASPOFUNGIN (CASPOFUNGIN) [Suspect]
     Indication: FUNGAL PERITONITIS

REACTIONS (16)
  - ASPERGILLOSIS [None]
  - B-CELL LYMPHOMA [None]
  - CANDIDIASIS [None]
  - FUNGAL PERITONITIS [None]
  - GRAFT COMPLICATION [None]
  - GRAFT DYSFUNCTION [None]
  - HEPATIC INFECTION [None]
  - LUNG INFECTION [None]
  - MULTI-ORGAN FAILURE [None]
  - MUSCLE GRAFT [None]
  - POST TRANSPLANT LYMPHOPROLIFERATIVE DISORDER [None]
  - SEPSIS [None]
  - SMALL INTESTINAL PERFORATION [None]
  - SPLENIC INFECTION [None]
  - TREATMENT NONCOMPLIANCE [None]
  - ZYGOMYCOSIS [None]
